FAERS Safety Report 8204591-4 (Version None)
Quarter: 2012Q1

REPORT INFORMATION
  Report Type: 
  Country: None (occurrence: None)
  Receive Date: 20120313
  Receipt Date: 20120308
  Transmission Date: 20120608
  Serious: Yes (Hospitalization, Other)
  Sender: FDA-Public Use
  Company Number: BR-PFIZER INC-2012062411

PATIENT
  Age: 77 Year
  Sex: Male

DRUGS (1)
  1. ALPRAZOLAM [Suspect]
     Indication: ANXIETY
     Dosage: 2 MG, 2X/DAY
     Route: 048
     Dates: start: 20080101

REACTIONS (5)
  - FALL [None]
  - BEDRIDDEN [None]
  - FEMUR FRACTURE [None]
  - ANXIETY [None]
  - PAIN [None]
